FAERS Safety Report 5049921-X (Version None)
Quarter: 2006Q3

REPORT INFORMATION
  Report Type: 
  Country: None (occurrence: None)
  Receive Date: 20060707
  Receipt Date: 20060629
  Transmission Date: 20061208
  Serious: Yes (Death)
  Sender: FDA-Public Use
  Company Number: 200611664BCC

PATIENT
  Age: 94 Year
  Sex: Female
  Weight: 54.4316 kg

DRUGS (1)
  1. ALEVE [Suspect]
     Indication: ARTHRITIS
     Dosage: 440 MG, OM, ORAL
     Route: 048
     Dates: end: 20031017

REACTIONS (1)
  - DEATH [None]
